FAERS Safety Report 14479337 (Version 1)
Quarter: 2018Q1

REPORT INFORMATION
  Report Type: Spontaneous
  Country: US (occurrence: US)
  Receive Date: 20180202
  Receipt Date: 20180202
  Transmission Date: 20180509
  Serious: No
  Sender: FDA-Public Use
  Company Number: US-BRISTOL-MYERS SQUIBB COMPANY-BMS-2018-009775

PATIENT
  Age: 66 Year
  Sex: Female

DRUGS (1)
  1. GLUCOPHAGE XR [Suspect]
     Active Substance: METFORMIN HYDROCHLORIDE
     Indication: PRODUCT USED FOR UNKNOWN INDICATION
     Dosage: UNK, BID
     Route: 065
     Dates: start: 20180129

REACTIONS (10)
  - Dizziness [Unknown]
  - Feeling of body temperature change [Unknown]
  - Arthralgia [Unknown]
  - Insomnia [Unknown]
  - Vision blurred [Unknown]
  - Pain in extremity [Unknown]
  - Pain [Unknown]
  - Headache [Unknown]
  - Hyperhidrosis [Unknown]
  - Blood pressure increased [Unknown]

NARRATIVE: CASE EVENT DATE: 20180129
